FAERS Safety Report 18095889 (Version 4)
Quarter: 2022Q1

REPORT INFORMATION
  Report Type: Spontaneous
  Country: US (occurrence: US)
  Receive Date: 20200730
  Receipt Date: 20220311
  Transmission Date: 20220423
  Serious: Yes (Hospitalization, Disabling, Other)
  Sender: FDA-Public Use
  Company Number: US-PURDUE-USA-2020-0160105

PATIENT
  Sex: Female

DRUGS (10)
  1. OXYCONTIN [Suspect]
     Active Substance: OXYCODONE HYDROCHLORIDE
     Indication: Post procedural complication
     Dosage: UNKNOWN
     Route: 048
  2. OXYCONTIN [Suspect]
     Active Substance: OXYCODONE HYDROCHLORIDE
     Dosage: 30 MG, QID
     Route: 048
     Dates: start: 2007, end: 2019
  3. DILAUDID [Suspect]
     Active Substance: HYDROMORPHONE HYDROCHLORIDE
     Indication: Post procedural complication
     Dosage: UNKNOWN
     Route: 048
  4. DILAUDID [Suspect]
     Active Substance: HYDROMORPHONE HYDROCHLORIDE
     Dosage: 2MG/4MG
     Route: 048
     Dates: start: 2010, end: 2019
  5. BUPRENORPHINE [Suspect]
     Active Substance: BUPRENORPHINE
     Indication: Product used for unknown indication
     Dosage: UNKNOWN
     Route: 062
  6. TRAMADOL [Suspect]
     Active Substance: TRAMADOL
     Indication: Product used for unknown indication
     Dosage: UNKNOWN
     Route: 065
  7. TRAMADOL [Suspect]
     Active Substance: TRAMADOL
     Dosage: 100 MG/200 MG
     Route: 048
     Dates: start: 2013, end: 2014
  8. OXYCODONE HYDROCHLORIDE [Suspect]
     Active Substance: OXYCODONE HYDROCHLORIDE
     Indication: Product used for unknown indication
     Dosage: 15 MG/30 MG QID
     Route: 065
     Dates: start: 2007, end: 2019
  9. HYDROCODONE BITARTRATE [Suspect]
     Active Substance: HYDROCODONE BITARTRATE
     Indication: Product used for unknown indication
     Dosage: 30 MG, QID
     Route: 065
     Dates: start: 2007, end: 2019
  10. BUTRANS [Suspect]
     Active Substance: BUPRENORPHINE
     Indication: Drug dependence
     Dosage: 7.5/15 MG
     Route: 062
     Dates: start: 2010, end: 2017

REACTIONS (19)
  - Coma [Unknown]
  - Behaviour disorder [Unknown]
  - Pneumonia aspiration [Unknown]
  - Overdose [Unknown]
  - Dependence [Recovering/Resolving]
  - Road traffic accident [Unknown]
  - Major depression [Unknown]
  - Disability [Unknown]
  - Suicidal ideation [Unknown]
  - Drug dependence [Recovering/Resolving]
  - Drug abuse [Unknown]
  - Legal problem [Unknown]
  - Mental disorder [Unknown]
  - Emotional disorder [Unknown]
  - Anhedonia [Unknown]
  - Musculoskeletal pain [Unknown]
  - Amnesia [Unknown]
  - Anxiety disorder [Unknown]
  - Drug withdrawal syndrome [Unknown]

NARRATIVE: CASE EVENT DATE: 20070101
